FAERS Safety Report 25548050 (Version 1)
Quarter: 2025Q3

REPORT INFORMATION
  Report Type: Spontaneous
  Country: RU (occurrence: RU)
  Receive Date: 20250714
  Receipt Date: 20250714
  Transmission Date: 20251021
  Serious: Yes (Death, Other)
  Sender: SANOFI AVENTIS
  Company Number: RU-BIOVITRUM-2025-RU-009464

PATIENT
  Age: 57 Year
  Sex: Male

DRUGS (2)
  1. ELOCTATE [Suspect]
     Active Substance: EFMOROCTOCOG ALFA
     Indication: Factor VIII deficiency
     Dosage: 4500 IU, BIW
     Route: 042
     Dates: start: 202305
  2. ELOCTATE [Suspect]
     Active Substance: EFMOROCTOCOG ALFA
     Indication: Factor VIII deficiency
     Dosage: 4500 IU, BIW
     Route: 042
     Dates: start: 202305

REACTIONS (2)
  - Open fracture [Fatal]
  - Fall [Fatal]
